FAERS Safety Report 14478405 (Version 2)
Quarter: 2018Q2

REPORT INFORMATION
  Report Type: Other
  Country: CA (occurrence: CA)
  Receive Date: 20180202
  Receipt Date: 20180422
  Transmission Date: 20180711
  Serious: Yes (Hospitalization, Other)
  Sender: FDA-Public Use
  Company Number: CA-APOTEX-2018AP006032

PATIENT
  Age: 59 Year
  Sex: Male

DRUGS (6)
  1. SYNTHROID [Concomitant]
     Active Substance: LEVOTHYROXINE SODIUM
     Indication: PRODUCT USED FOR UNKNOWN INDICATION
     Dosage: 0.1 MG, QD
     Route: 065
  2. BUPROPION HYDROBROMIDE [Concomitant]
     Active Substance: BUPROPION HYDROBROMIDE
     Indication: PRODUCT USED FOR UNKNOWN INDICATION
     Dosage: 150 MG, QD
     Route: 065
  3. ROSUVASTATIN. [Suspect]
     Active Substance: ROSUVASTATIN
     Indication: BLOOD CHOLESTEROL ABNORMAL
     Dosage: 10 MG, QD
     Route: 065
  4. SANDOSTATIN [Suspect]
     Active Substance: OCTREOTIDE ACETATE
     Indication: ADENOMA BENIGN
     Dosage: 20 MG, Q.M.T.
     Route: 030
  5. DOSTINEX [Concomitant]
     Active Substance: CABERGOLINE
     Indication: PRODUCT USED FOR UNKNOWN INDICATION
     Dosage: 0.5 MG, ONE EVERY TWO WEEKS
     Route: 065
  6. SILDENAFIL CITRATE. [Concomitant]
     Active Substance: SILDENAFIL CITRATE
     Indication: PRODUCT USED FOR UNKNOWN INDICATION
     Dosage: 100 MG, UNK
     Route: 065

REACTIONS (32)
  - Blood pressure increased [Recovered/Resolved]
  - Skin disorder [Recovered/Resolved]
  - Skin plaque [Recovered/Resolved]
  - Erythema [Recovered/Resolved]
  - Induration [Recovered/Resolved]
  - Influenza [Recovered/Resolved]
  - Laceration [Recovered/Resolved]
  - Phlebitis [Recovered/Resolved]
  - General physical condition abnormal [Recovered/Resolved]
  - Mass [Recovered/Resolved]
  - Hypotension [Recovered/Resolved]
  - Myalgia [Recovered/Resolved]
  - Hypersensitivity [Recovered/Resolved]
  - Productive cough [Recovered/Resolved]
  - Blood pressure systolic increased [Recovered/Resolved]
  - Body temperature decreased [Recovered/Resolved]
  - Movement disorder [Recovered/Resolved]
  - Pain in extremity [Recovered/Resolved]
  - Product use in unapproved indication [Recovered/Resolved]
  - Pruritus [Recovered/Resolved]
  - Fall [Recovered/Resolved]
  - Heart rate increased [Recovered/Resolved]
  - Tenderness [Recovered/Resolved]
  - Wound [Recovered/Resolved]
  - Dizziness [Recovered/Resolved]
  - Depression [Recovered/Resolved]
  - Bloody discharge [Recovered/Resolved]
  - Localised infection [Recovered/Resolved]
  - Rhinorrhoea [Recovered/Resolved]
  - Blood pressure systolic decreased [Recovered/Resolved]
  - Psoriasis [Recovered/Resolved]
  - Pyrexia [Recovered/Resolved]
